FAERS Safety Report 7508760-8 (Version None)
Quarter: 2011Q2

REPORT INFORMATION
  Report Type: 
  Country: None (occurrence: None)
  Receive Date: 20110527
  Receipt Date: 20110110
  Transmission Date: 20111010
  Serious: No
  Sender: FDA-Public Use
  Company Number: A0904951A

PATIENT
  Age: 12 Year
  Sex: Male

DRUGS (3)
  1. RITALIN [Concomitant]
  2. CONCERTA [Concomitant]
  3. VENTOLIN [Suspect]
     Route: 055

REACTIONS (3)
  - DRUG ADMINISTRATION ERROR [None]
  - SKIN DISCOLOURATION [None]
  - URTICARIA [None]
